FAERS Safety Report 6054724-3 (Version None)
Quarter: 2009Q1

REPORT INFORMATION
  Report Type: 
  Country: None (occurrence: None)
  Receive Date: 20090128
  Receipt Date: 20090119
  Transmission Date: 20090719
  Serious: Yes (Hospitalization)
  Sender: FDA-Public Use
  Company Number: CN-BRISTOL-MYERS SQUIBB COMPANY-14483671

PATIENT
  Age: 45 Year
  Sex: Male

DRUGS (1)
  1. ERBITUX [Suspect]
     Indication: NEOPLASM MALIGNANT
     Route: 041
     Dates: start: 20090101

REACTIONS (3)
  - ERUCTATION [None]
  - HAEMOPTYSIS [None]
  - PORTAL VEIN THROMBOSIS [None]
